FAERS Safety Report 4701139-3 (Version None)
Quarter: 2005Q2

REPORT INFORMATION
  Report Type: 
  Country: None (occurrence: None)
  Receive Date: 20050628
  Receipt Date: 20050627
  Transmission Date: 20051028
  Serious: Yes (Hospitalization)
  Sender: FDA-Public Use
  Company Number: US-GLAXOSMITHKLINE-A0564289A

PATIENT
  Sex: Male

DRUGS (12)
  1. AVANDIA [Suspect]
     Indication: DIABETES MELLITUS NON-INSULIN-DEPENDENT
     Route: 048
     Dates: start: 20020101, end: 20050601
  2. ZOLOFT [Concomitant]
  3. MONOPRIL [Concomitant]
  4. LOVASTATIN [Concomitant]
  5. LASIX [Concomitant]
  6. FLONASE [Concomitant]
  7. MULTI-VITAMIN [Concomitant]
  8. HUMULIN 70/30 [Concomitant]
  9. TESSALON [Concomitant]
  10. SPIRONOLACTONE [Concomitant]
  11. MAGNESIUM [Concomitant]
  12. ALLEGRA [Concomitant]

REACTIONS (4)
  - FLUID RETENTION [None]
  - PLEURAL EFFUSION [None]
  - PNEUMONIA [None]
  - WEIGHT INCREASED [None]
